FAERS Safety Report 11422816 (Version 1)
Quarter: 2015Q3

REPORT INFORMATION
  Report Type: Spontaneous
  Country: US (occurrence: None)
  Receive Date: 20150826
  Receipt Date: 20150826
  Transmission Date: 20151125
  Serious: Yes (Hospitalization)
  Sender: FDA-Public Use
  Company Number: None

PATIENT
  Age: 75 Year
  Sex: Male
  Weight: 99.1 kg

DRUGS (2)
  1. WARFARIN [Suspect]
     Active Substance: WARFARIN
     Indication: ATRIAL FIBRILLATION
     Dates: start: 20070627, end: 20150805
  2. WARFARIN [Suspect]
     Active Substance: WARFARIN
     Indication: CARDIAC OPERATION
     Dates: start: 20070627, end: 20150805

REACTIONS (7)
  - Barrett^s oesophagus [None]
  - Anaemia [None]
  - Gastric haemorrhage [None]
  - Large intestinal haemorrhage [None]
  - Fatigue [None]
  - Acute kidney injury [None]
  - Dyspnoea [None]

NARRATIVE: CASE EVENT DATE: 20150805
